FAERS Safety Report 4895986-5 (Version None)
Quarter: 2006Q1

REPORT INFORMATION
  Report Type: 
  Country: None (occurrence: None)
  Receive Date: 20060125
  Receipt Date: 20051128
  Transmission Date: 20060701
  Serious: Yes (Other)
  Sender: FDA-Public Use
  Company Number: 2005162377

PATIENT
  Age: 21 Year
  Sex: Female

DRUGS (1)
  1. UNISOM [Suspect]
     Indication: INSOMNIA
     Dosage: 6 TABLETS ONCE, ORAL
     Route: 048
     Dates: start: 20051128, end: 20051128

REACTIONS (1)
  - SOMNOLENCE [None]
